FAERS Safety Report 7905091-9 (Version None)
Quarter: 2011Q4

REPORT INFORMATION
  Report Type: 
  Country: None (occurrence: None)
  Receive Date: 20111109
  Receipt Date: 20111107
  Transmission Date: 20120403
  Serious: Yes (Death, Other)
  Sender: FDA-Public Use
  Company Number: PHHY2011TH098142

PATIENT
  Sex: Female

DRUGS (2)
  1. GLEEVEC [Suspect]
     Indication: CHRONIC MYELOID LEUKAEMIA
     Dosage: 400 MG, UNK
     Route: 048
     Dates: start: 20100923
  2. GLEEVEC [Suspect]
     Dosage: 800 MG, UNK
     Route: 048

REACTIONS (3)
  - DEATH [None]
  - CHRONIC MYELOID LEUKAEMIA [None]
  - NEOPLASM PROGRESSION [None]
